FAERS Safety Report 7326584 (Version 6)
Quarter: 2012Q4

REPORT INFORMATION
  Report Type: 
  Country: CH (occurrence: US)
  Receive Date: 20100321
  Receipt Date: 20121127
  Transmission Date: 20130627
  Serious: Yes (Other)
  Sender: FDA-Public Use
  Company Number: US-BRISTOL-MYERS SQUIBB COMPANY-15024854

PATIENT
  Age: 5 Year

DRUGS (4)
  1. SUSTIVA [Suspect]
     Route: 064
  2. NEVIRAPINE [Suspect]
     Route: 064
  3. ABACAVIR [Suspect]
     Route: 064
  4. LAMIVUDINE [Suspect]
     Route: 064

REACTIONS (3)
  - Talipes [Unknown]
  - Hypertonia [Unknown]
  - Maternal drugs affecting foetus [None]
